FAERS Safety Report 4645392-3 (Version None)
Quarter: 2005Q2

REPORT INFORMATION
  Report Type: 
  Country: None (occurrence: None)
  Receive Date: 20050425
  Receipt Date: 20050412
  Transmission Date: 20051028
  Serious: Yes (Life-Threatening, Hospitalization, Disabling)
  Sender: FDA-Public Use
  Company Number: 2005059888

PATIENT
  Age: 59 Year
  Sex: Male

DRUGS (2)
  1. GABAPENTIN [Suspect]
     Indication: NEUROPATHIC PAIN
     Dosage: (3 IN 1 D), ORAL
     Route: 048
     Dates: start: 20040301
  2. AMITRIPTYLINE HCL [Concomitant]

REACTIONS (5)
  - CIRCULATORY COLLAPSE [None]
  - DIZZINESS [None]
  - HYPOAESTHESIA [None]
  - LOSS OF CONSCIOUSNESS [None]
  - ORTHOSTATIC HYPOTENSION [None]
